FAERS Safety Report 4692893-8 (Version None)
Quarter: 2005Q2

REPORT INFORMATION
  Report Type: 
  Country: None (occurrence: None)
  Receive Date: 20050615
  Receipt Date: 20050526
  Transmission Date: 20051028
  Serious: Yes (Disabling)
  Sender: FDA-Public Use
  Company Number: US_0505118009

PATIENT
  Age: 20 Year
  Sex: Male

DRUGS (1)
  1. CEFACLOR [Suspect]
     Indication: UPPER RESPIRATORY TRACT INFLAMMATION
     Dates: start: 20050419, end: 20050423

REACTIONS (9)
  - ADVERSE DRUG REACTION [None]
  - BODY TEMPERATURE INCREASED [None]
  - DYSPNOEA [None]
  - EOSINOPHILIC MYOCARDITIS [None]
  - GASTRIC ULCER [None]
  - HEPATIC FUNCTION ABNORMAL [None]
  - INFECTION [None]
  - VIRAL MYOCARDITIS [None]
  - VIRAL UPPER RESPIRATORY TRACT INFECTION [None]
